FAERS Safety Report 11448677 (Version 4)
Quarter: 2015Q4

REPORT INFORMATION
  Report Type: Spontaneous
  Country: ES (occurrence: ES)
  Receive Date: 20150902
  Receipt Date: 20151110
  Transmission Date: 20160304
  Serious: Yes (Hospitalization, Other)
  Sender: FDA-Public Use
  Company Number: ES-OTSUKA-US-2015-11580

PATIENT

DRUGS (3)
  1. ABILIFY MAINTENA [Suspect]
     Active Substance: ARIPIPRAZOLE
     Indication: PSYCHOTIC DISORDER
     Dosage: 400 MG, QM
     Route: 030
     Dates: start: 20150324
  2. XEPLION [Suspect]
     Active Substance: PALIPERIDONE PALMITATE
     Dosage: 150 MG, QM
     Route: 030
     Dates: end: 20150303
  3. XEPLION [Suspect]
     Active Substance: PALIPERIDONE PALMITATE
     Indication: PSYCHOTIC DISORDER
     Dosage: 100 MG, QM
     Route: 030
     Dates: start: 20150303, end: 20150324

REACTIONS (2)
  - Pancreatitis [Recovered/Resolved]
  - Abdominal pain [Recovered/Resolved]

NARRATIVE: CASE EVENT DATE: 20150401
